FAERS Safety Report 23710755 (Version 1)
Quarter: 2024Q2

REPORT INFORMATION
  Report Type: Report from Study
  Country: CA (occurrence: CA)
  Receive Date: 20240405
  Receipt Date: 20240405
  Transmission Date: 20240716
  Serious: Yes (Other)
  Sender: FDA-Public Use
  Company Number: CA-JNJFOC-20231230948

PATIENT
  Age: 64 Year
  Sex: Male

DRUGS (2)
  1. REMICADE [Suspect]
     Active Substance: INFLIXIMAB
     Indication: Crohn^s disease
     Route: 041
     Dates: start: 20170426
  2. REMICADE [Suspect]
     Active Substance: INFLIXIMAB
     Dosage: ON 28-MAR-2024, THE PATIENT RECEIVED 60TH INFLIXIMAB, RECOMBINANT INFUSION FOR DOSE 600 MILLIGRAMS
     Route: 041
     Dates: start: 20240328

REACTIONS (2)
  - Ear infection [Recovering/Resolving]
  - SARS-CoV-2 test positive [Recovered/Resolved]

NARRATIVE: CASE EVENT DATE: 20231106
